FAERS Safety Report 5297741-3 (Version None)
Quarter: 2007Q2

REPORT INFORMATION
  Report Type: 
  Country: None (occurrence: None)
  Receive Date: 20070412
  Receipt Date: 20070412
  Transmission Date: 20071010
  Serious: Yes (Other)
  Sender: FDA-Public Use
  Company Number: None

PATIENT
  Age: 35 Year
  Sex: Male
  Weight: 70.3075 kg

DRUGS (1)
  1. ALAVERT [Suspect]
     Indication: HYPERSENSITIVITY
     Dosage: 1 TABLET 1 PER DAY PO
     Route: 048
     Dates: start: 20060112, end: 20060113

REACTIONS (6)
  - DRY MOUTH [None]
  - EUPHORIC MOOD [None]
  - INSOMNIA [None]
  - MOOD SWINGS [None]
  - NERVOUSNESS [None]
  - THIRST [None]
